FAERS Safety Report 18955033 (Version 1)
Quarter: 2021Q1

REPORT INFORMATION
  Report Type: Report from Study
  Country: BR (occurrence: BR)
  Receive Date: 20210301
  Receipt Date: 20210301
  Transmission Date: 20210420
  Serious: Yes (Other)
  Sender: FDA-Public Use
  Company Number: NVSC2021BR009754

PATIENT
  Age: 60 Year
  Sex: Female
  Weight: 86 kg

DRUGS (4)
  1. TAMOXIFEN [Concomitant]
     Active Substance: TAMOXIFEN
     Indication: BREAST NEOPLASM
  2. ANASTROZOLE. [Suspect]
     Active Substance: ANASTROZOLE
     Indication: BREAST CANCER METASTATIC
  3. ANASTROZOLE. [Suspect]
     Active Substance: ANASTROZOLE
     Indication: BREAST NEOPLASM
     Dosage: UNK
     Route: 065
     Dates: start: 2009, end: 2015
  4. TAMOXIFEN [Concomitant]
     Active Substance: TAMOXIFEN
     Indication: BREAST CANCER
     Dosage: UNK
     Route: 065
     Dates: start: 2009, end: 2015

REACTIONS (20)
  - Breast cancer recurrent [Unknown]
  - Mucosal inflammation [Recovered/Resolved]
  - Aspartate aminotransferase increased [Unknown]
  - Hyperhidrosis [Recovering/Resolving]
  - Malignant neoplasm progression [Unknown]
  - Alanine aminotransferase increased [Unknown]
  - Condition aggravated [Unknown]
  - Red blood cell count decreased [Unknown]
  - Neutrophil count decreased [Unknown]
  - Metastasis [Unknown]
  - Fatigue [Recovering/Resolving]
  - White blood cell count decreased [Unknown]
  - Hypermetabolism [Unknown]
  - Monocyte count decreased [Unknown]
  - Synovial cyst [Unknown]
  - Blood bilirubin decreased [Unknown]
  - Bone disorder [Unknown]
  - Bone pain [Recovered/Resolved]
  - Carbohydrate antigen 15-3 increased [Unknown]
  - Metastases to bone [Unknown]

NARRATIVE: CASE EVENT DATE: 2016
